FAERS Safety Report 7398182-5 (Version None)
Quarter: 2011Q2

REPORT INFORMATION
  Report Type: 
  Country: None (occurrence: None)
  Receive Date: 20110406
  Receipt Date: 20110329
  Transmission Date: 20111010
  Serious: Yes (Hospitalization)
  Sender: FDA-Public Use
  Company Number: US-US-EMD SERONO, INC.-7050863

PATIENT
  Sex: Female

DRUGS (3)
  1. TYLENOL XR [Concomitant]
     Indication: PREMEDICATION
  2. IBUPROFEN [Concomitant]
     Indication: PREMEDICATION
  3. REBIF [Suspect]
     Indication: PRODUCT USED FOR UNKNOWN INDICATION
     Route: 058
     Dates: start: 20100329

REACTIONS (3)
  - CLAUSTROPHOBIA [None]
  - RENAL DISORDER [None]
  - DYSPNOEA [None]
